FAERS Safety Report 10251086 (Version 1)
Quarter: 2014Q2

REPORT INFORMATION
  Report Type: Spontaneous
  Country: US (occurrence: US)
  Receive Date: 20140620
  Receipt Date: 20140620
  Transmission Date: 20141212
  Serious: No
  Sender: FDA-Public Use
  Company Number: US-SUCAMPO PHARMA AMERICAS, INC-SPI201400425

PATIENT
  Age: 58 Year
  Sex: Female

DRUGS (3)
  1. AMITIZA [Suspect]
     Indication: CONSTIPATION
     Dosage: 8 MCG, QD (SAMPLES)
     Route: 048
     Dates: start: 201406, end: 201406
  2. AMITIZA [Suspect]
     Indication: ABDOMINAL DISTENSION
     Dosage: 8 MCG, BID (SAMPLES)
     Route: 048
     Dates: start: 201406, end: 201406
  3. AMITIZA [Suspect]
     Indication: PAIN

REACTIONS (2)
  - Dyspnoea [Unknown]
  - Drug ineffective [Unknown]
